FAERS Safety Report 12843069 (Version 2)
Quarter: 2016Q4

REPORT INFORMATION
  Report Type: Report from Study
  Country: KR (occurrence: KR)
  Receive Date: 20161013
  Receipt Date: 20161027
  Transmission Date: 20170207
  Serious: Yes (Hospitalization)
  Sender: FDA-Public Use
  Company Number: KR-B.I. PHARMACEUTICALS,INC./RIDGEFIELD-2016-BI-064543

PATIENT
  Age: 80 Year
  Sex: Male
  Weight: 71 kg

DRUGS (9)
  1. PLETAAL [Concomitant]
     Active Substance: CILOSTAZOL
     Indication: VASCULAR GRAFT OCCLUSION
  2. CAPRIL [Concomitant]
     Indication: ARTERIAL SWITCH OPERATION
     Route: 048
     Dates: start: 20140403
  3. BERASIL [Concomitant]
     Active Substance: BERAPROST
     Indication: VASCULAR GRAFT OCCLUSION
  4. CAPRIL [Concomitant]
     Indication: VASCULAR GRAFT OCCLUSION
  5. PLETAAL [Concomitant]
     Active Substance: CILOSTAZOL
     Indication: ARTERIAL SWITCH OPERATION
     Route: 048
     Dates: start: 20140403
  6. BERASIL [Concomitant]
     Active Substance: BERAPROST
     Indication: ARTERIAL SWITCH OPERATION
     Route: 048
     Dates: start: 20140403, end: 20150226
  7. JENTADUETO [Suspect]
     Active Substance: LINAGLIPTIN\METFORMIN HYDROCHLORIDE
     Indication: TYPE 2 DIABETES MELLITUS
     Dosage: TOTAL DAILY DOSE: 2.5/850 MG BID
     Route: 048
     Dates: start: 20140626
  8. SYNTHROID [Concomitant]
     Active Substance: LEVOTHYROXINE SODIUM
     Indication: HYPOTHYROIDISM
     Route: 048
     Dates: start: 20130725
  9. SYNTHROID [Concomitant]
     Active Substance: LEVOTHYROXINE SODIUM
     Indication: AUTOIMMUNE THYROIDITIS

REACTIONS (1)
  - Angina pectoris [Recovered/Resolved]

NARRATIVE: CASE EVENT DATE: 20140701
